FAERS Safety Report 5631105-5 (Version None)
Quarter: 2008Q1

REPORT INFORMATION
  Report Type: 
  Country: None (occurrence: None)
  Receive Date: 20080219
  Receipt Date: 20080208
  Transmission Date: 20080703
  Serious: Yes (Hospitalization)
  Sender: FDA-Public Use
  Company Number: FR-PFIZER INC-2008012974

PATIENT
  Sex: Male

DRUGS (5)
  1. SOLU-MEDROL [Suspect]
     Indication: PREMEDICATION
     Dosage: DAILY DOSE:60MG
     Route: 042
     Dates: start: 20070226, end: 20070301
  2. FLUOROURACIL [Suspect]
     Indication: OROPHARYNGEAL CANCER STAGE UNSPECIFIED
     Dosage: DAILY DOSE:4000MG
     Route: 042
     Dates: start: 20070226, end: 20070301
  3. CARBOPLATIN [Suspect]
     Indication: OROPHARYNGEAL CANCER STAGE UNSPECIFIED
     Dosage: DAILY DOSE:120MG
     Route: 042
     Dates: start: 20070226, end: 20070301
  4. PLITICAN [Suspect]
     Indication: PREMEDICATION
     Dosage: DAILY DOSE:100MG
     Route: 042
     Dates: start: 20070226, end: 20070301
  5. KYTRIL [Suspect]
     Indication: PREMEDICATION
     Dosage: DAILY DOSE:3MG
     Route: 042
     Dates: start: 20070226, end: 20070301

REACTIONS (3)
  - PURPURA [None]
  - RASH ERYTHEMATOUS [None]
  - TOXIC SKIN ERUPTION [None]
